FAERS Safety Report 14764587 (Version 1)
Quarter: 2018Q2

REPORT INFORMATION
  Report Type: Spontaneous
  Country: US (occurrence: US)
  Receive Date: 20180410
  Receipt Date: 20180410
  Transmission Date: 20180711
  Serious: No
  Sender: FDA-Public Use
  Company Number: None

PATIENT
  Age: 73 Year
  Sex: Male

DRUGS (1)
  1. GENOTROPIN [Suspect]
     Active Substance: SOMATROPIN

REACTIONS (5)
  - Musculoskeletal stiffness [None]
  - Hypoaesthesia [None]
  - Peripheral swelling [None]
  - Pain in extremity [None]
  - Paraesthesia [None]

NARRATIVE: CASE EVENT DATE: 20180310
